FAERS Safety Report 4648810-X (Version None)
Quarter: 2005Q2

REPORT INFORMATION
  Report Type: 
  Country: None (occurrence: None)
  Receive Date: 20050427
  Receipt Date: 20050125
  Transmission Date: 20051028
  Serious: Yes (Hospitalization)
  Sender: FDA-Public Use
  Company Number: AU_050108335

PATIENT
  Age: 32 Year
  Sex: Female

DRUGS (3)
  1. FLUOXETINE ORAL (FLUOXETINE (FLUOXETINE HDYROCHLOR [Suspect]
     Indication: DEPRESSION
     Dosage: 20 MG DAY
     Dates: start: 20040720
  2. CEPHALEXIN [Suspect]
     Indication: UPPER RESPIRATORY TRACT INFECTION
     Dosage: 500 MG/4 DAY
     Dates: start: 20040909
  3. PARACETAMOL WITH CODEINE [Concomitant]

REACTIONS (5)
  - ALANINE AMINOTRANSFERASE INCREASED [None]
  - ASPARTATE AMINOTRANSFERASE INCREASED [None]
  - NAUSEA [None]
  - UPPER RESPIRATORY TRACT INFECTION [None]
  - VOMITING [None]
